FAERS Safety Report 6854268-2 (Version None)
Quarter: 2010Q3

REPORT INFORMATION
  Report Type: 
  Country: None (occurrence: None)
  Receive Date: 20100717
  Receipt Date: 20071231
  Transmission Date: 20110219
  Serious: No
  Sender: FDA-Public Use
  Company Number: US-PFIZER INC-2008001472

PATIENT
  Sex: Male
  Weight: 111.36 kg

DRUGS (8)
  1. CHANTIX [Suspect]
     Indication: SMOKING CESSATION THERAPY
     Dates: start: 20071212, end: 20071228
  2. VALPROATE SODIUM [Concomitant]
  3. BENZTROPINE MESYLATE [Concomitant]
  4. RISPERDAL [Concomitant]
  5. ALBUTEROL [Concomitant]
     Route: 055
  6. KLONOPIN [Concomitant]
  7. FLUVOXAMINE [Concomitant]
  8. OMEPRAZOLE [Concomitant]

REACTIONS (2)
  - CONSTIPATION [None]
  - NIGHTMARE [None]
